FAERS Safety Report 7052186-0 (Version None)
Quarter: 2010Q4

REPORT INFORMATION
  Report Type: 
  Country: None (occurrence: None)
  Receive Date: 20101019
  Receipt Date: 20101013
  Transmission Date: 20110411
  Serious: Yes (Other)
  Sender: FDA-Public Use
  Company Number: US-JNJCH-2010023563

PATIENT
  Age: 46 Year
  Sex: Female
  Weight: 68 kg

DRUGS (2)
  1. COOL MINT LISTERINE [Suspect]
     Indication: DENTAL DISORDER PROPHYLAXIS
     Dosage: TEXT:LESS THAN HALF OF A SMALL CUPFUL 2X A DA
     Route: 048
     Dates: start: 20071001, end: 20101012
  2. ONE-A-DAY [Concomitant]
     Indication: VITAMIN SUPPLEMENTATION
     Dosage: TEXT:1 X DAY
     Route: 065

REACTIONS (8)
  - APPLICATION SITE PAIN [None]
  - DIZZINESS [None]
  - DYSPHAGIA [None]
  - FLUSHING [None]
  - HYPERSENSITIVITY [None]
  - LIP SWELLING [None]
  - PRODUCT TASTE ABNORMAL [None]
  - THROAT TIGHTNESS [None]
